FAERS Safety Report 18235385 (Version 1)
Quarter: 2020Q3

REPORT INFORMATION
  Report Type: Spontaneous
  Country: IT (occurrence: IT)
  Receive Date: 20200905
  Receipt Date: 20200905
  Transmission Date: 20201103
  Serious: Yes (Hospitalization)
  Sender: FDA-Public Use
  Company Number: IT-SUN PHARMACEUTICAL INDUSTRIES LTD-2020RR-259965

PATIENT
  Age: 72 Year
  Sex: Male

DRUGS (8)
  1. LITHIUM CARBONATE. [Suspect]
     Active Substance: LITHIUM CARBONATE
     Indication: DEPRESSION
     Dosage: 300 MILLIGRAM, DAILY
     Route: 048
  2. DORZOLAMIDE CLORIDRATO/TIMOLOLO MALEATO [Concomitant]
     Indication: GLAUCOMA
     Dosage: 1 GTT DROPS, UNK
     Route: 047
  3. DELORAZEPAM [Suspect]
     Active Substance: DELORAZEPAM
     Indication: DEPRESSION
     Dosage: 10 GTT DROPS, DAILY
     Route: 048
  4. SERTRALINE [Suspect]
     Active Substance: SERTRALINE HYDROCHLORIDE
     Indication: BIPOLAR DISORDER
     Dosage: 100 MILLIGRAM, DAILY
     Route: 048
  5. AMLODIPINE [Concomitant]
     Active Substance: AMLODIPINE BESYLATE
     Indication: HYPERTENSION
     Dosage: 5 MILLIGRAMS, UNK
     Route: 048
  6. ALPRAZOLAM. [Suspect]
     Active Substance: ALPRAZOLAM
     Indication: DEPRESSION
     Dosage: 0.25 MILLIGRAMS, DAILY
     Route: 048
  7. LORAZEPAM. [Suspect]
     Active Substance: LORAZEPAM
     Indication: INSOMNIA
     Dosage: 2.5 MILLIGRAM, DAILY
     Route: 048
  8. ACETYLSALICYLIC ACID [Concomitant]
     Active Substance: ASPIRIN
     Indication: PRODUCT USED FOR UNKNOWN INDICATION
     Dosage: 100 MILLIGRAMS, DAILY
     Route: 048

REACTIONS (3)
  - Hyporesponsive to stimuli [Recovering/Resolving]
  - Gaze palsy [Recovering/Resolving]
  - Confusional state [Recovering/Resolving]

NARRATIVE: CASE EVENT DATE: 20200712
